FAERS Safety Report 8926274 (Version 1)
Quarter: 2012Q4

REPORT INFORMATION
  Report Type: 
  Country: GB (occurrence: GB)
  Receive Date: 20121126
  Receipt Date: 20121126
  Transmission Date: 20130627
  Serious: Yes (Death, Other)
  Sender: FDA-Public Use
  Company Number: GB-ABBOTT-12P-167-1012250-00

PATIENT
  Age: 41 Year
  Sex: Male
  Weight: 117 kg

DRUGS (1)
  1. HUMIRA [Suspect]
     Indication: PSORIASIS
     Route: 058
     Dates: start: 20120911

REACTIONS (3)
  - Dyspnoea [Unknown]
  - Multi-organ failure [Fatal]
  - Cardiomegaly [Fatal]
